FAERS Safety Report 19553761 (Version 2)
Quarter: 2021Q3

REPORT INFORMATION
  Report Type: Spontaneous
  Country: US (occurrence: US)
  Receive Date: 20210714
  Receipt Date: 20210729
  Transmission Date: 20211014
  Serious: No
  Sender: FDA-Public Use
  Company Number: US-VIIV HEALTHCARE LIMITED-US2021AMR149275

PATIENT
  Sex: Male
  Weight: 61.32 kg

DRUGS (2)
  1. DOVATO [Suspect]
     Active Substance: DOLUTEGRAVIR SODIUM\LAMIVUDINE
     Indication: HIV INFECTION
     Dosage: UNK, QD, 50MG?300MG
     Route: 048
     Dates: start: 202011, end: 202106
  2. BACTRIM DS [Concomitant]
     Active Substance: SULFAMETHOXAZOLE\TRIMETHOPRIM
     Indication: PRODUCT USED FOR UNKNOWN INDICATION
     Dosage: UNK UNK, WE, 800MG?160MG THREE TIMES WEEKLY
     Route: 048

REACTIONS (2)
  - Drug ineffective [Unknown]
  - Virologic failure [Unknown]

NARRATIVE: CASE EVENT DATE: 2021
